FAERS Safety Report 8576361-9 (Version None)
Quarter: 2012Q2

REPORT INFORMATION
  Report Type: 
  Country: None (occurrence: None)
  Receive Date: 20120423
  Receipt Date: 20100108
  Transmission Date: 20120825
  Serious: Yes (Other)
  Sender: FDA-Public Use
  Company Number: PHEH2009US13044

PATIENT
  Age: 8 Year
  Sex: Male

DRUGS (11)
  1. EXJADE [Suspect]
     Indication: SERUM FERRITIN INCREASED
     Dosage: 500 MG DAILY, ORAL ; 250 MG, QD ; 500 MG, QD
     Route: 048
     Dates: start: 20091028
  2. EXJADE [Suspect]
     Indication: IRON OVERLOAD
     Dosage: 500 MG DAILY, ORAL ; 250 MG, QD ; 500 MG, QD
     Route: 048
     Dates: start: 20091028
  3. EXJADE [Suspect]
     Indication: SERUM FERRITIN INCREASED
     Dosage: 500 MG DAILY, ORAL ; 250 MG, QD ; 500 MG, QD
     Route: 048
     Dates: start: 20091014, end: 20091028
  4. EXJADE [Suspect]
     Indication: IRON OVERLOAD
     Dosage: 500 MG DAILY, ORAL ; 250 MG, QD ; 500 MG, QD
     Route: 048
     Dates: start: 20091014, end: 20091028
  5. EXJADE [Suspect]
     Indication: SERUM FERRITIN INCREASED
     Dosage: 500 MG DAILY, ORAL ; 250 MG, QD ; 500 MG, QD
     Route: 048
     Dates: start: 20090916, end: 20090930
  6. EXJADE [Suspect]
     Indication: IRON OVERLOAD
     Dosage: 500 MG DAILY, ORAL ; 250 MG, QD ; 500 MG, QD
     Route: 048
     Dates: start: 20090916, end: 20090930
  7. PENICILLIN V [Concomitant]
  8. ACETAMINOPHEN W/ CODEINE [Concomitant]
  9. HYDROXYUREA [Concomitant]
  10. FOLIC ACID [Concomitant]
  11. IBUPROFEN [Concomitant]

REACTIONS (1)
  - HEPATIC ENZYME INCREASED [None]
